FAERS Safety Report 22050392 (Version 1)
Quarter: 2023Q1

REPORT INFORMATION
  Report Type: Spontaneous
  Country: US (occurrence: US)
  Receive Date: 20230301
  Receipt Date: 20230301
  Transmission Date: 20230417
  Serious: Yes (Hospitalization, Disabling)
  Sender: FDA-Public Use
  Company Number: US-TEVA-2023-US-2859370

PATIENT
  Age: 50 Year
  Sex: Female
  Weight: 65.77 kg

DRUGS (26)
  1. DOCETAXEL [Suspect]
     Active Substance: DOCETAXEL
     Indication: Breast cancer female
     Dosage: 6 CYCLES, EVERY 3 WEEKS 16-OCT-2014, 06-NOV-2014,04-DEC-2014, 26-DEC-2014, 15-JAN-2015, 13-FEB-2015
     Route: 042
     Dates: start: 20141016, end: 20150213
  2. DOCETAXEL [Suspect]
     Active Substance: DOCETAXEL
     Route: 042
     Dates: start: 20170109, end: 20170522
  3. DOCETAXEL [Suspect]
     Active Substance: DOCETAXEL
     Indication: Breast cancer female
     Dosage: 6 CYCLES, EVERY 3 WEEKS 16-OCT-2014, 06-NOV-2014,04-DEC-2014, 26-DEC-2014, 15-JAN-2015, 13-FEB-2015
     Route: 042
     Dates: start: 20141016, end: 20150213
  4. DOCETAXEL [Suspect]
     Active Substance: DOCETAXEL
     Route: 042
     Dates: start: 20170109, end: 20170522
  5. ADRIAMYCIN [Suspect]
     Active Substance: DOXORUBICIN HYDROCHLORIDE
     Indication: Breast cancer female
     Route: 065
     Dates: start: 20130114, end: 20130422
  6. CYTOXAN [Suspect]
     Active Substance: CYCLOPHOSPHAMIDE
     Indication: Breast cancer female
     Route: 065
     Dates: start: 20130114, end: 20130422
  7. TAXOL [Suspect]
     Active Substance: PACLITAXEL
     Indication: Breast cancer female
     Route: 065
     Dates: start: 20130114, end: 20130422
  8. XELODA [Suspect]
     Active Substance: CAPECITABINE
     Indication: Product used for unknown indication
     Dosage: 6 CYCLES, EVERY 3 WEEKS 16-OCT-2014, 06-NOV-2014,04-DEC-2014, 26-DEC-2014, 15-JAN-2015, 13-FEB-2015
     Route: 065
     Dates: start: 20141016, end: 20150213
  9. XELODA [Suspect]
     Active Substance: CAPECITABINE
     Dosage: XELODA 2000 MG TWICE A DAY FOR 7 DAYS ON AND 7 DAYS OFF
     Route: 065
     Dates: start: 201503, end: 201506
  10. XELODA [Suspect]
     Active Substance: CAPECITABINE
     Dosage: XELODA 1500 MG TWICE A DAY FOR 7 DAYS ON AND 7 DAYS OFF ?1500 MG TWICE A DAY FOR 5 DAYS ON AND 9 DAY
     Route: 065
     Dates: start: 201507
  11. FASLODEX [Concomitant]
     Active Substance: FULVESTRANT
     Indication: Product used for unknown indication
     Dosage: 01-AUG-2014 TO UNKNOWN DATE AND 22-MAY-2017 TO UNKNOWN DATE
     Route: 030
     Dates: start: 20140801
  12. IBRANCE [Concomitant]
     Active Substance: PALBOCICLIB
     Indication: Product used for unknown indication
  13. KEFLEX [Concomitant]
     Active Substance: CEPHALEXIN
     Indication: Product used for unknown indication
     Route: 065
     Dates: start: 20120619
  14. NORCO [Concomitant]
     Active Substance: ACETAMINOPHEN\HYDROCODONE BITARTRATE
     Indication: Product used for unknown indication
     Route: 065
     Dates: start: 20120619
  15. FLEXERIL [Concomitant]
     Active Substance: CYCLOBENZAPRINE HYDROCHLORIDE
     Indication: Product used for unknown indication
     Route: 065
     Dates: start: 20120619
  16. PROCHLORPERAZINE [Concomitant]
     Active Substance: PROCHLORPERAZINE
     Indication: Product used for unknown indication
     Route: 065
     Dates: start: 20120619
  17. ATIVAN [Concomitant]
     Active Substance: LORAZEPAM
     Indication: Product used for unknown indication
     Route: 065
     Dates: start: 20120619
  18. ZOFRAN [Concomitant]
     Active Substance: ONDANSETRON HYDROCHLORIDE
     Indication: Product used for unknown indication
     Route: 065
     Dates: start: 20120619
  19. ROBAXIN [Concomitant]
     Active Substance: METHOCARBAMOL
     Indication: Product used for unknown indication
     Route: 065
     Dates: start: 20120619
  20. DOXYCYCLINE [Concomitant]
     Active Substance: DOXYCYCLINE
     Indication: Product used for unknown indication
     Route: 065
     Dates: start: 20120619
  21. DEXAMETHASONE [Concomitant]
     Active Substance: DEXAMETHASONE
     Indication: Product used for unknown indication
     Route: 042
     Dates: start: 20120619
  22. Mometasone Furoate cream [Concomitant]
     Indication: Product used for unknown indication
     Route: 065
     Dates: start: 20120619
  23. PROTONIX [Concomitant]
     Active Substance: PANTOPRAZOLE SODIUM
     Indication: Product used for unknown indication
     Route: 065
     Dates: start: 20120619
  24. Sprironolactone [Concomitant]
     Indication: Product used for unknown indication
     Route: 065
     Dates: start: 20120619
  25. ZOMETA [Concomitant]
     Active Substance: ZOLEDRONIC ACID
     Indication: Product used for unknown indication
     Route: 042
  26. NEULASTA [Concomitant]
     Active Substance: PEGFILGRASTIM
     Indication: Product used for unknown indication
     Route: 058

REACTIONS (18)
  - Alopecia areata [Not Recovered/Not Resolved]
  - Madarosis [Not Recovered/Not Resolved]
  - Anaemia [Recovering/Resolving]
  - Pleural effusion [Recovering/Resolving]
  - Fatigue [Unknown]
  - Decreased appetite [Unknown]
  - Back pain [Not Recovered/Not Resolved]
  - Arthralgia [Unknown]
  - Hair colour changes [Not Recovered/Not Resolved]
  - Hair texture abnormal [Not Recovered/Not Resolved]
  - Palmar-plantar erythrodysaesthesia syndrome [Not Recovered/Not Resolved]
  - Skin discolouration [Unknown]
  - Erythema [Not Recovered/Not Resolved]
  - Skin fissures [Unknown]
  - Muscle swelling [Unknown]
  - Fluid retention [Recovering/Resolving]
  - Skin exfoliation [Not Recovered/Not Resolved]
  - Pain [Unknown]

NARRATIVE: CASE EVENT DATE: 20140101
